FAERS Safety Report 14269574 (Version 2)
Quarter: 2018Q3

REPORT INFORMATION
  Report Type: Spontaneous
  Country: US (occurrence: US)
  Receive Date: 20171211
  Receipt Date: 20180709
  Transmission Date: 20181010
  Serious: Yes (Other)
  Sender: FDA-Public Use
  Company Number: US-OTSUKA-2017_002414

PATIENT
  Sex: Male

DRUGS (5)
  1. ABILIFY [Suspect]
     Active Substance: ARIPIPRAZOLE
     Indication: ANGER
  2. ABILIFY [Suspect]
     Active Substance: ARIPIPRAZOLE
     Indication: AFFECTIVE DISORDER
     Dosage: 7.5 MG, QD
     Route: 065
     Dates: start: 200404
  3. ABILIFY [Suspect]
     Active Substance: ARIPIPRAZOLE
     Indication: PERSONALITY CHANGE
  4. ABILIFY [Suspect]
     Active Substance: ARIPIPRAZOLE
     Indication: COGNITIVE DISORDER
     Dosage: 10 MG, QD
     Route: 065
     Dates: end: 2014
  5. ABILIFY [Suspect]
     Active Substance: ARIPIPRAZOLE
     Indication: PARANOIA

REACTIONS (19)
  - Eating disorder [Recovered/Resolved]
  - Compulsive sexual behaviour [Recovered/Resolved]
  - Obsessive-compulsive disorder [Not Recovered/Not Resolved]
  - Shoplifting [Recovered/Resolved]
  - Compulsive hoarding [Recovered/Resolved]
  - Brain injury [Unknown]
  - Suicide attempt [Recovered/Resolved]
  - Injury [Not Recovered/Not Resolved]
  - Compulsive shopping [Recovered/Resolved]
  - Gambling disorder [Recovered/Resolved]
  - Emotional distress [Not Recovered/Not Resolved]
  - Skin abrasion [Unknown]
  - Product use in unapproved indication [Unknown]
  - Theft [Recovered/Resolved]
  - Mental disorder [Not Recovered/Not Resolved]
  - Impulsive behaviour [Unknown]
  - Psychosexual disorder [Unknown]
  - Suicidal ideation [Recovered/Resolved]
  - Trichotillomania [Recovered/Resolved]
